FAERS Safety Report 6467458-8 (Version None)
Quarter: 2009Q4

REPORT INFORMATION
  Report Type: 
  Country: None (occurrence: None)
  Receive Date: 20091202
  Receipt Date: 20091123
  Transmission Date: 20100525
  Serious: Yes (Other)
  Sender: FDA-Public Use
  Company Number: GXKR2009TH12748

PATIENT
  Age: 40 Year
  Sex: Male

DRUGS (3)
  1. PREDNISOLONE [Suspect]
     Indication: MYASTHENIA GRAVIS
     Dosage: 50 MG/DAY
     Route: 048
  2. PREDNISOLONE [Suspect]
     Dosage: 10 MG/DAY
     Route: 048
  3. AZATHIOPRINE [Concomitant]
     Indication: MYASTHENIA GRAVIS
     Dosage: 50 MG/DAY
     Route: 065

REACTIONS (5)
  - CHORIORETINOPATHY [None]
  - RETINAL DETACHMENT [None]
  - RETINAL OEDEMA [None]
  - SUBRETINAL FIBROSIS [None]
  - VISUAL ACUITY REDUCED [None]
